FAERS Safety Report 8742018 (Version 3)
Quarter: 2012Q4

REPORT INFORMATION
  Report Type: 
  Country: US (occurrence: US)
  Receive Date: 20120824
  Receipt Date: 20120925
  Transmission Date: 20130627
  Serious: Yes (Other)
  Sender: FDA-Public Use
  Company Number: US-SANOFI-AVENTIS-2012SA058014

PATIENT
  Age: 82 Year
  Sex: Female
  Weight: 59 kg

DRUGS (8)
  1. PLAVIX [Suspect]
     Indication: PROPHYLAXIS
     Route: 048
     Dates: start: 1997
  2. AMLODIPINE [Concomitant]
  3. METOPROLOL [Concomitant]
  4. MULTIVITAMIN AND MINERAL SUPPLEMENT [Concomitant]
  5. FISH OIL [Concomitant]
  6. OXYCODONE [Concomitant]
     Indication: PAIN
     Dates: start: 201112, end: 201203
  7. BENAZEPRIL [Concomitant]
     Dates: start: 2011
  8. POTASSIUM [Concomitant]
     Dates: start: 2009

REACTIONS (10)
  - Spinal column stenosis [Unknown]
  - Bladder cancer [Unknown]
  - Haematoma [Unknown]
  - Gait disturbance [Not Recovered/Not Resolved]
  - Nerve injury [Not Recovered/Not Resolved]
  - Peroneal nerve palsy [Not Recovered/Not Resolved]
  - Pain [Not Recovered/Not Resolved]
  - Hypoaesthesia [Not Recovered/Not Resolved]
  - Macular degeneration [Unknown]
  - Cataract [Unknown]
